FAERS Safety Report 8197589-6 (Version None)
Quarter: 2012Q1

REPORT INFORMATION
  Report Type: 
  Country: None (occurrence: None)
  Receive Date: 20120309
  Receipt Date: 20120224
  Transmission Date: 20120608
  Serious: Yes (Other)
  Sender: FDA-Public Use
  Company Number: JP-ROCHE-1045442

PATIENT
  Sex: Male

DRUGS (28)
  1. PREDNISOLONE [Concomitant]
     Indication: PROPHYLAXIS AGAINST TRANSPLANT REJECTION
     Dosage: 2.5-15MG
     Route: 048
     Dates: start: 20060310, end: 20060612
  2. PLETAL [Concomitant]
     Indication: PROPHYLAXIS
     Route: 048
     Dates: start: 20060311
  3. SULPERAZON (JAPAN) [Concomitant]
     Route: 042
     Dates: start: 20060306, end: 20060309
  4. FAMOTIDINE [Concomitant]
     Indication: PROPHYLAXIS
     Route: 048
     Dates: start: 20061106
  5. MYCOPHENOLATE MOFETIL (CELLCEPT) [Suspect]
     Indication: LIVER TRANSPLANT
     Route: 048
     Dates: start: 20060228, end: 20060228
  6. MYCOPHENOLATE MOFETIL (CELLCEPT) [Suspect]
     Route: 048
     Dates: start: 20060516, end: 20060709
  7. COPEGUS [Suspect]
     Indication: PRODUCT USED FOR UNKNOWN INDICATION
     Route: 048
     Dates: start: 20060404, end: 20080804
  8. COTRIM [Concomitant]
     Indication: PROPHYLAXIS
     Route: 048
     Dates: start: 20060301, end: 20060807
  9. OMEPRAZOLE [Concomitant]
     Indication: PROPHYLAXIS
     Dosage: 20-40MG
     Route: 042
     Dates: start: 20060228, end: 20060311
  10. MYCOPHENOLATE MOFETIL (CELLCEPT) [Suspect]
     Route: 048
     Dates: start: 20060328, end: 20060328
  11. MYCOPHENOLATE MOFETIL (CELLCEPT) [Suspect]
     Route: 048
     Dates: start: 20060305, end: 20060305
  12. MYCOPHENOLATE MOFETIL (CELLCEPT) [Suspect]
     Route: 048
     Dates: start: 20060710, end: 20060904
  13. SOLU-MEDROL [Concomitant]
     Indication: PROPHYLAXIS AGAINST TRANSPLANT REJECTION
     Dosage: 20MG-1G
     Route: 042
     Dates: start: 20060228, end: 20060309
  14. FUNGUARD [Concomitant]
     Indication: PROPHYLAXIS
     Route: 042
     Dates: start: 20060301, end: 20060314
  15. FLUMARIN [Concomitant]
     Indication: PROPHYLAXIS
     Route: 042
     Dates: start: 20060228, end: 20060301
  16. MEROPEN (JAPAN) [Concomitant]
     Dates: start: 20060302, end: 20060304
  17. LASIX [Concomitant]
     Indication: PROPHYLAXIS
     Dosage: 20-80MG
     Route: 048
     Dates: start: 20060308
  18. MYCOPHENOLATE MOFETIL (CELLCEPT) [Suspect]
     Route: 048
     Dates: start: 20060301, end: 20060304
  19. MYCOPHENOLATE MOFETIL (CELLCEPT) [Suspect]
     Route: 048
     Dates: start: 20060306, end: 20060327
  20. PEG-INTRON [Concomitant]
     Route: 058
     Dates: start: 20060404, end: 20080825
  21. MYCOPHENOLATE MOFETIL (CELLCEPT) [Suspect]
     Route: 048
     Dates: start: 20060329, end: 20060515
  22. NEORAL [Concomitant]
     Indication: PROPHYLAXIS AGAINST TRANSPLANT REJECTION
     Route: 048
     Dates: start: 20060301
  23. URSO 250 [Concomitant]
     Indication: PROPHYLAXIS
     Route: 048
     Dates: start: 20060301, end: 20060904
  24. GANCICLOVIR [Concomitant]
     Indication: PROPHYLAXIS
     Route: 042
     Dates: start: 20060301, end: 20060310
  25. LAMIVUDINE (EPIVIR HBV) [Concomitant]
     Indication: PROPHYLAXIS
     Dosage: 50-100MG
     Route: 048
     Dates: start: 20060301
  26. CLINDAMYCIN [Concomitant]
     Indication: PROPHYLAXIS
     Route: 042
     Dates: start: 20060228, end: 20060301
  27. VANCOMYCIN [Concomitant]
     Route: 042
     Dates: start: 20060302, end: 20060304
  28. RABEPRAZOLE SODIUM [Concomitant]
     Indication: PROPHYLAXIS
     Route: 048
     Dates: start: 20060312, end: 20061105

REACTIONS (2)
  - ANAEMIA [None]
  - INTRA-ABDOMINAL HAEMORRHAGE [None]
